FAERS Safety Report 16978502 (Version 4)
Quarter: 2020Q1

REPORT INFORMATION
  Report Type: Spontaneous
  Country: US (occurrence: US)
  Receive Date: 20191031
  Receipt Date: 20200309
  Transmission Date: 20200409
  Serious: Yes (Other)
  Sender: FDA-Public Use
  Company Number: US-JNJFOC-20191041954

PATIENT
  Sex: Female
  Weight: 58.11 kg

DRUGS (3)
  1. CLINDAMYCIN. [Interacting]
     Active Substance: CLINDAMYCIN
     Indication: TOOTH INFECTION
     Dosage: FOR TEN DAYS
     Route: 048
     Dates: start: 20191008, end: 20191018
  2. SIMPONI ARIA [Suspect]
     Active Substance: GOLIMUMAB
     Indication: RHEUMATOID ARTHRITIS
     Route: 042
     Dates: start: 201805
  3. SYNTHROID [Concomitant]
     Active Substance: LEVOTHYROXINE SODIUM
     Indication: HYPOTHYROIDISM
     Route: 048
     Dates: start: 200310

REACTIONS (5)
  - Tooth infection [Recovered/Resolved]
  - Rheumatoid arthritis [Not Recovered/Not Resolved]
  - Drug interaction [Recovered/Resolved]
  - Drug ineffective [Unknown]
  - Influenza [Recovered/Resolved]

NARRATIVE: CASE EVENT DATE: 2018
